FAERS Safety Report 10052965 (Version 1)
Quarter: 2014Q2

REPORT INFORMATION
  Report Type: Spontaneous
  Country: US (occurrence: US)
  Receive Date: 20140402
  Receipt Date: 20140402
  Transmission Date: 20141212
  Serious: No
  Sender: FDA-Public Use
  Company Number: US-MALLINCKRODT-T201401688

PATIENT
  Age: 12 Year
  Sex: Male

DRUGS (4)
  1. METHYLPHENIDATE HYDROCHLORIDE EXTENDED RELEASE TABLETS [Suspect]
     Indication: ATTENTION DEFICIT/HYPERACTIVITY DISORDER
     Dosage: 54 MG, QD
     Route: 065
     Dates: end: 201402
  2. METHYLPHENIDATE [Suspect]
     Indication: ATTENTION DEFICIT/HYPERACTIVITY DISORDER
     Route: 065
  3. SINGULAIR [Concomitant]
     Indication: ASTHMA
     Dosage: UNK, QD
     Route: 048
  4. ADVAIR [Concomitant]
     Indication: ASTHMA
     Dosage: UNK, QD

REACTIONS (4)
  - Appetite disorder [Not Recovered/Not Resolved]
  - Sleep disorder [Not Recovered/Not Resolved]
  - Weight decreased [Unknown]
  - Drug effect decreased [Recovering/Resolving]
